FAERS Safety Report 21467855 (Version 2)
Quarter: 2022Q4

REPORT INFORMATION
  Report Type: Spontaneous
  Country: US (occurrence: US)
  Receive Date: 20221017
  Receipt Date: 20221025
  Transmission Date: 20230112
  Serious: Yes (Hospitalization, Other)
  Sender: FDA-Public Use
  Company Number: US-ID BIOMEDICAL CORPORATION OF QUEBEC-US2022GSK146721

PATIENT

DRUGS (3)
  1. INFLUENZA VIRUS VACCINE [Suspect]
     Active Substance: INFLUENZA VIRUS VACCINE
     Indication: Prophylaxis
  2. DIPHTHERIA AND TETANUS TOXOIDS AND ACELLULAR PERTUSSIS VACCINE ADSORBE [Suspect]
     Active Substance: DIPHTHERIA AND TETANUS TOXOIDS AND ACELLULAR PERTUSSIS VACCINE ADSORBED
     Indication: Prophylaxis
  3. COVID-19 VACCINE NOS [Suspect]
     Active Substance: COVID-19 VACCINE NOS
     Indication: Prophylaxis
     Dosage: UNK

REACTIONS (18)
  - Myelitis transverse [Recovering/Resolving]
  - Paraesthesia [Recovering/Resolving]
  - Gait disturbance [Recovering/Resolving]
  - Burning sensation [Recovering/Resolving]
  - Constipation [Recovering/Resolving]
  - Pain in extremity [Recovering/Resolving]
  - Loss of proprioception [Recovering/Resolving]
  - Decreased vibratory sense [Recovering/Resolving]
  - Extensor plantar response [Recovering/Resolving]
  - Hypoaesthesia [Recovering/Resolving]
  - Gait spastic [Recovering/Resolving]
  - White matter lesion [Recovering/Resolving]
  - Cerebral small vessel ischaemic disease [Recovering/Resolving]
  - Urinary retention [Recovering/Resolving]
  - Fatigue [Recovering/Resolving]
  - Muscular weakness [Recovering/Resolving]
  - Sensory disturbance [Recovering/Resolving]
  - Autonomic nervous system imbalance [Recovering/Resolving]
